FAERS Safety Report 24601796 (Version 1)
Quarter: 2024Q4

REPORT INFORMATION
  Report Type: Spontaneous
  Country: US (occurrence: US)
  Receive Date: 20241111
  Receipt Date: 20241111
  Transmission Date: 20250115
  Serious: No
  Sender: ABBVIE
  Company Number: US-ABBVIE-5995585

PATIENT

DRUGS (2)
  1. RINVOQ [Suspect]
     Active Substance: UPADACITINIB
     Indication: Product used for unknown indication
     Route: 048
  2. ENTYVIO [Concomitant]
     Active Substance: VEDOLIZUMAB
     Indication: Product used for unknown indication
     Dates: start: 202410

REACTIONS (3)
  - Anorectal disorder [Unknown]
  - Abdominal pain [Unknown]
  - Incontinence [Unknown]

NARRATIVE: CASE EVENT DATE: 20241001
